FAERS Safety Report 13211712 (Version 1)
Quarter: 2017Q1

REPORT INFORMATION
  Report Type: Spontaneous
  Country: US (occurrence: US)
  Receive Date: 20170210
  Receipt Date: 20170210
  Transmission Date: 20170428
  Serious: Yes (Hospitalization)
  Sender: FDA-Public Use
  Company Number: US-PFIZER INC-2017052404

PATIENT
  Age: 30 Year
  Sex: Male

DRUGS (1)
  1. ZOLOFT [Suspect]
     Active Substance: SERTRALINE HYDROCHLORIDE
     Indication: DEPRESSION
     Dosage: 50 MG, 1X/DAY

REACTIONS (4)
  - Balance disorder [Recovering/Resolving]
  - Incontinence [Not Recovered/Not Resolved]
  - Gait disturbance [Unknown]
  - Condition aggravated [Not Recovered/Not Resolved]
